FAERS Safety Report 9610849 (Version 2)
Quarter: 2013Q4

REPORT INFORMATION
  Report Type: Spontaneous
  Country: JP (occurrence: JP)
  Receive Date: 20131009
  Receipt Date: 20131023
  Transmission Date: 20140711
  Serious: Yes (Life-Threatening, Hospitalization)
  Sender: FDA-Public Use
  Company Number: JP-PFIZER INC-2013282874

PATIENT
  Age: 22 Year
  Sex: Female

DRUGS (7)
  1. JZOLOFT [Suspect]
     Indication: DEPRESSION
     Dosage: 300 MG, UNK
     Route: 048
  2. RISPERDAL [Suspect]
     Dosage: 24 MG, UNK
  3. SEROQUEL [Suspect]
     Dosage: 1200 MG, UNK
     Route: 048
  4. LITHIUM CARBONATE [Suspect]
     Dosage: 12000 MG, UNK
  5. SODIUM VALPROATE [Suspect]
     Dosage: 16800 MG, UNK
  6. FLUNITRAZEPAM [Suspect]
     Dosage: 12 MG, UNK
  7. BROMAZEPAM [Suspect]
     Dosage: 60 MG, UNK

REACTIONS (5)
  - Intentional overdose [Unknown]
  - Suicide attempt [Recovered/Resolved]
  - Toxicity to various agents [Recovered/Resolved]
  - Shock [Unknown]
  - Blood pressure decreased [Unknown]
